FAERS Safety Report 16816140 (Version 1)
Quarter: 2019Q3

REPORT INFORMATION
  Report Type: Spontaneous
  Country: US (occurrence: US)
  Receive Date: 20190917
  Receipt Date: 20190917
  Transmission Date: 20191005
  Serious: No
  Sender: FDA-Public Use
  Company Number: US-ALLERGAN-1920130US

PATIENT
  Age: 77 Year
  Sex: Female

DRUGS (2)
  1. ALIGN [Concomitant]
     Active Substance: BIFIDOBACTERIUM LONGUM SUBSP. INFANTIS
     Indication: CONSTIPATION
  2. LINZESS [Suspect]
     Active Substance: LINACLOTIDE
     Indication: IRRITABLE BOWEL SYNDROME
     Dosage: TAKING IT ON AND OFF ONLY WHEN SHE HAD SEVERE CONSTIPATION
     Route: 065
     Dates: start: 2016

REACTIONS (7)
  - Inappropriate schedule of product administration [Unknown]
  - Constipation [Not Recovered/Not Resolved]
  - Expired product administered [Unknown]
  - Pain [Recovered/Resolved]
  - Diarrhoea [Unknown]
  - Therapeutic product effect delayed [Unknown]
  - Muscle spasms [Recovered/Resolved]

NARRATIVE: CASE EVENT DATE: 20190504
